FAERS Safety Report 9444117 (Version 1)
Quarter: 2013Q3

REPORT INFORMATION
  Report Type: Spontaneous
  Country: US (occurrence: None)
  Receive Date: 20130806
  Receipt Date: 20130806
  Transmission Date: 20140515
  Serious: Yes (Hospitalization)
  Sender: FDA-Public Use
  Company Number: None

PATIENT
  Age: 79 Year
  Sex: Female
  Weight: 78.47 kg

DRUGS (7)
  1. XARELTO [Suspect]
     Indication: COAGULOPATHY
     Route: 048
     Dates: start: 20130502, end: 20130612
  2. HYDROXYCHLOROQUINE [Concomitant]
  3. AZATHIOPRINE [Concomitant]
  4. METHYLPRED [Concomitant]
  5. WARFARIN [Concomitant]
  6. GLIPIZIDE [Concomitant]
  7. B-COMPLEX [Concomitant]

REACTIONS (4)
  - International normalised ratio abnormal [None]
  - Pruritus [None]
  - Nausea [None]
  - Thrombosis [None]
